FAERS Safety Report 19321429 (Version 2)
Quarter: 2021Q2

REPORT INFORMATION
  Report Type: Spontaneous
  Country: US (occurrence: US)
  Receive Date: 20210528
  Receipt Date: 20210630
  Transmission Date: 20210717
  Serious: No
  Sender: FDA-Public Use
  Company Number: US-ASTRAZENECA-2021A407017

PATIENT
  Age: 3126 Week
  Sex: Female
  Weight: 59 kg

DRUGS (8)
  1. CLARINEX [Concomitant]
     Active Substance: DESLORATADINE
     Indication: MULTIPLE ALLERGIES
     Route: 048
  2. BUDESONIDE RESPULES [Suspect]
     Active Substance: BUDESONIDE
     Indication: SINUSITIS
     Dosage: AS REQUIRED
     Route: 055
  3. PULMICORT FLEXHALER [Suspect]
     Active Substance: BUDESONIDE
     Indication: ASTHMA
     Route: 055
     Dates: start: 2006
  4. MONTELUKAST [Concomitant]
     Active Substance: MONTELUKAST SODIUM
     Indication: ASTHMA
     Route: 048
  5. OTHER INHALERS [Concomitant]
  6. PREDNISONE. [Concomitant]
     Active Substance: PREDNISONE
  7. BUDESONIDE RESPULES [Suspect]
     Active Substance: BUDESONIDE
     Indication: ASTHMA
     Dosage: AS REQUIRED
     Route: 055
  8. LEVA SOMETHING [Concomitant]
     Indication: ASTHMA
     Dosage: AS REQUIRED
     Route: 055

REACTIONS (16)
  - Device use issue [Unknown]
  - Lower respiratory tract infection [Unknown]
  - Cough [Not Recovered/Not Resolved]
  - Palpitations [Not Recovered/Not Resolved]
  - Asthma [Not Recovered/Not Resolved]
  - Dizziness [Recovered/Resolved]
  - Movement disorder [Recovered/Resolved]
  - Spinal disorder [Not Recovered/Not Resolved]
  - Intercepted medication error [Unknown]
  - Secretion discharge [Not Recovered/Not Resolved]
  - Hyperhidrosis [Recovered/Resolved]
  - Device use confusion [Unknown]
  - Osteoporosis [Not Recovered/Not Resolved]
  - Wrong technique in device usage process [Unknown]
  - Device delivery system issue [Not Recovered/Not Resolved]
  - Dyspnoea [Recovered/Resolved]

NARRATIVE: CASE EVENT DATE: 202002
